FAERS Safety Report 8578546-4 (Version None)
Quarter: 2012Q3

REPORT INFORMATION
  Report Type: 
  Country: None (occurrence: None)
  Receive Date: 20120808
  Receipt Date: 20120802
  Transmission Date: 20120928
  Serious: No
  Sender: FDA-Public Use
  Company Number: US-BAYER-2012-079622

PATIENT
  Sex: Female

DRUGS (1)
  1. MIRENA [Suspect]
     Indication: CONTRACEPTION
     Dosage: 20 MCG/24HR, CONT
     Route: 015
     Dates: start: 20101201, end: 20120101

REACTIONS (5)
  - BREAST TENDERNESS [None]
  - ABDOMINAL PAIN [None]
  - HEADACHE [None]
  - WEIGHT INCREASED [None]
  - ADVERSE EVENT [None]
